FAERS Safety Report 17693010 (Version 1)
Quarter: 2020Q2

REPORT INFORMATION
  Report Type: Spontaneous
  Country: US (occurrence: US)
  Receive Date: 20200422
  Receipt Date: 20200422
  Transmission Date: 20200714
  Serious: No
  Sender: FDA-Public Use
  Company Number: None

PATIENT
  Age: 84 Year
  Sex: Female
  Weight: 69.44 kg

DRUGS (13)
  1. SOLIFENACIN [Concomitant]
     Active Substance: SOLIFENACIN
  2. HCTZ [Concomitant]
     Active Substance: HYDROCHLOROTHIAZIDE
  3. ACETAMINOPHEN. [Concomitant]
     Active Substance: ACETAMINOPHEN
  4. PANTOPRAZOLE [Concomitant]
     Active Substance: PANTOPRAZOLE
  5. METOPROLOL SUCCINATE. [Concomitant]
     Active Substance: METOPROLOL SUCCINATE
  6. FOLIC ACID/MUTLI VITAMIN/LUTEIN [Concomitant]
  7. POTASSIUM [Concomitant]
     Active Substance: POTASSIUM
  8. LETROZOLE. [Concomitant]
     Active Substance: LETROZOLE
  9. TOLTERODINE [Concomitant]
     Active Substance: TOLTERODINE
  10. FOLIC ACID. [Concomitant]
     Active Substance: FOLIC ACID
  11. AMLODIPINE [Concomitant]
     Active Substance: AMLODIPINE BESYLATE
  12. IBRANCE [Suspect]
     Active Substance: PALBOCICLIB
     Indication: BREAST CANCER
     Route: 048
     Dates: start: 20200303, end: 20200422
  13. IPRATROPIUM ALBUTEROL [Concomitant]
     Active Substance: ALBUTEROL\IPRATROPIUM

REACTIONS (1)
  - Neutropenia [None]

NARRATIVE: CASE EVENT DATE: 20200422
